FAERS Safety Report 19190555 (Version 1)
Quarter: 2021Q2

REPORT INFORMATION
  Report Type: Report from Study
  Country: JP (occurrence: JP)
  Receive Date: 20210428
  Receipt Date: 20210428
  Transmission Date: 20210717
  Serious: Yes (Death, Other)
  Sender: FDA-Public Use
  Company Number: JP-AMGEN-JPNCT2018136586

PATIENT
  Age: 86 Year
  Sex: Female

DRUGS (8)
  1. CARBAZOCHROME SULFONATE NA [Concomitant]
     Indication: BRONCHIECTASIS
     Dosage: 30 MILLIGRAM
     Route: 048
     Dates: start: 20160131
  2. DARBEPOETIN ALFA [Suspect]
     Active Substance: DARBEPOETIN ALFA
     Indication: MYELODYSPLASTIC SYNDROME
     Dosage: 240 MICROGRAM, QWK
     Route: 058
     Dates: start: 20160125, end: 20160516
  3. DARBEPOETIN ALFA [Suspect]
     Active Substance: DARBEPOETIN ALFA
     Dosage: 240 MICROGRAM, QWK
     Route: 058
     Dates: start: 20150601, end: 20150713
  4. DARBEPOETIN ALFA [Suspect]
     Active Substance: DARBEPOETIN ALFA
     Dosage: 240 MICROGRAM, QWK
     Route: 058
     Dates: start: 20150824, end: 20151109
  5. ARGAMATE [Concomitant]
     Active Substance: CALCIUM POLYSTYRENE SULFONATE
     Indication: HYPERKALAEMIA
     Dosage: 150 GRAM, UNK (50?150 G)
     Route: 048
     Dates: end: 20160425
  6. TRANEXAMIC ACID. [Concomitant]
     Active Substance: TRANEXAMIC ACID
     Indication: BRONCHIECTASIS
     Dosage: 750 MILLIGRAM
     Route: 048
     Dates: start: 20160131
  7. DARBEPOETIN ALFA [Suspect]
     Active Substance: DARBEPOETIN ALFA
     Dosage: 240 MICROGRAM, QWK
     Route: 058
     Dates: start: 20151125, end: 20160113
  8. AVELOX [Concomitant]
     Active Substance: MOXIFLOXACIN HYDROCHLORIDE
     Indication: BRONCHITIS
     Dosage: 400 MILLIGRAM
     Route: 048
     Dates: start: 20150629, end: 20150713

REACTIONS (6)
  - Bronchitis [Recovering/Resolving]
  - Haemoptysis [Unknown]
  - Death [Fatal]
  - Epistaxis [Recovering/Resolving]
  - Disease progression [Unknown]
  - Haemoptysis [Unknown]

NARRATIVE: CASE EVENT DATE: 20150629
